FAERS Safety Report 5492918-6 (Version None)
Quarter: 2007Q4

REPORT INFORMATION
  Report Type: 
  Country: None (occurrence: None)
  Receive Date: 20071023
  Receipt Date: 20071009
  Transmission Date: 20080405
  Serious: Yes (Hospitalization)
  Sender: FDA-Public Use
  Company Number: US-AMGEN-US247384

PATIENT
  Sex: Female
  Weight: 72.6 kg

DRUGS (7)
  1. PROCRIT [Suspect]
     Indication: RENAL FAILURE CHRONIC
     Route: 058
     Dates: start: 20070323, end: 20070924
  2. CALCITRIOL [Concomitant]
     Route: 048
  3. MULTIVITAMINS AND IRON [Concomitant]
  4. COZAAR [Concomitant]
     Route: 048
  5. NIFEREX [Concomitant]
     Route: 048
  6. ECHINACEA EXTRACT [Concomitant]
     Route: 048
  7. ALLEGRA [Concomitant]

REACTIONS (1)
  - APLASIA PURE RED CELL [None]
